FAERS Safety Report 8758237 (Version 1)
Quarter: 2012Q4

REPORT INFORMATION
  Report Type: Spontaneous
  Country: US (occurrence: None)
  Receive Date: 20120828
  Receipt Date: 20120828
  Transmission Date: 20130627
  Serious: Yes (Life-Threatening)
  Sender: FDA-Public Use
  Company Number: None

PATIENT
  Age: 61 Year
  Sex: Female
  Weight: 70.31 kg

DRUGS (1)
  1. AMBIEN [Suspect]
     Dosage: one tablet at bedtime PRN
     Route: 048
     Dates: start: 20080101, end: 20110309

REACTIONS (5)
  - Somnambulism [None]
  - Alcohol use [None]
  - Road traffic accident [None]
  - Amnesia [None]
  - Legal problem [None]
